FAERS Safety Report 23059454 (Version 1)
Quarter: 2023Q4

REPORT INFORMATION
  Report Type: Spontaneous
  Country: US (occurrence: US)
  Receive Date: 20231012
  Receipt Date: 20231012
  Transmission Date: 20240110
  Serious: No
  Sender: FDA-Public Use
  Company Number: US-MYLANLABS-2023M1106971

PATIENT
  Sex: Female

DRUGS (1)
  1. ESTRADIOL [Suspect]
     Active Substance: ESTRADIOL
     Indication: Urinary tract infection
     Dosage: 0.01 PERCENT, 3XW (THRICE WEEKLY)
     Route: 067
     Dates: start: 20230920

REACTIONS (2)
  - Off label use [Unknown]
  - Device defective [Unknown]

NARRATIVE: CASE EVENT DATE: 20230920
